FAERS Safety Report 5865201-4 (Version None)
Quarter: 2008Q3

REPORT INFORMATION
  Report Type: 
  Country: None (occurrence: None)
  Receive Date: 20080829
  Receipt Date: 20080827
  Transmission Date: 20090109
  Serious: Yes (Hospitalization)
  Sender: FDA-Public Use
  Company Number: B0528360A

PATIENT
  Age: 81 Year
  Sex: Female

DRUGS (10)
  1. SAWACILLIN [Suspect]
     Indication: UPPER RESPIRATORY TRACT INFLAMMATION
     Dosage: 250MG THREE TIMES PER DAY
     Route: 048
     Dates: start: 20080523, end: 20080526
  2. LAMISIL [Suspect]
     Dosage: 125MG FOUR TIMES PER DAY
     Route: 048
     Dates: start: 20080502, end: 20080602
  3. ACECOL [Concomitant]
     Dosage: 2MG FOUR TIMES PER DAY
     Route: 048
  4. ALTAT [Concomitant]
     Dosage: 37.5MG TWICE PER DAY
     Route: 048
     Dates: end: 20080602
  5. PIRMENOL HYDROCHLORIDE [Concomitant]
     Dosage: 100MG TWICE PER DAY
     Route: 048
     Dates: end: 20080602
  6. SUCRALFATE [Concomitant]
     Dosage: 100MG THREE TIMES PER DAY
     Route: 048
     Dates: end: 20080602
  7. METFORMIN HYDROCHLORIDE [Concomitant]
     Dosage: 250MG THREE TIMES PER DAY
     Route: 048
     Dates: end: 20080602
  8. PL [Concomitant]
     Indication: UPPER RESPIRATORY TRACT INFLAMMATION
     Dosage: 1G THREE TIMES PER DAY
     Route: 065
     Dates: start: 20080523, end: 20080526
  9. LOXONIN [Concomitant]
     Indication: UPPER RESPIRATORY TRACT INFLAMMATION
     Dosage: 60MG THREE TIMES PER DAY
     Route: 065
     Dates: start: 20080523, end: 20080526
  10. OZEX [Concomitant]
     Indication: UPPER RESPIRATORY TRACT INFLAMMATION
     Dosage: 150MG THREE TIMES PER DAY
     Route: 065
     Dates: start: 20080526, end: 20080602

REACTIONS (4)
  - CHOLESTASIS [None]
  - DRUG ERUPTION [None]
  - JAUNDICE [None]
  - NASOPHARYNGITIS [None]
